FAERS Safety Report 7655509-4 (Version None)
Quarter: 2011Q3

REPORT INFORMATION
  Report Type: 
  Country: None (occurrence: None)
  Receive Date: 20110804
  Receipt Date: 20110617
  Transmission Date: 20111222
  Serious: No
  Sender: FDA-Public Use
  Company Number: US-PFIZER INC-2011175727

PATIENT
  Sex: Female

DRUGS (1)
  1. LYRICA [Suspect]
     Dosage: 300 MG, 2X/DAY

REACTIONS (3)
  - OEDEMA PERIPHERAL [None]
  - PAIN [None]
  - DRUG INTOLERANCE [None]
